FAERS Safety Report 4474904-8 (Version None)
Quarter: 2004Q4

REPORT INFORMATION
  Report Type: 
  Country: None (occurrence: None)
  Receive Date: 20041014
  Receipt Date: 20041006
  Transmission Date: 20050328
  Serious: Yes (Hospitalization)
  Sender: FDA-Public Use
  Company Number: US-MERCK-0410USA00940

PATIENT
  Age: 71 Year
  Sex: Male

DRUGS (8)
  1. NORVASC [Concomitant]
     Route: 065
  2. ASPIRIN [Concomitant]
     Route: 065
  3. BLOOD THINNER (UNSPECIFIED) [Concomitant]
     Route: 065
  4. ZYRTEC [Concomitant]
     Route: 065
  5. PLAVIX [Concomitant]
     Route: 065
  6. ACTONEL [Concomitant]
     Route: 065
  7. VIOXX [Suspect]
     Route: 048
     Dates: start: 19990101, end: 20030101
  8. ZOCOR [Concomitant]
     Route: 048

REACTIONS (1)
  - STENT PLACEMENT [None]
